FAERS Safety Report 13856273 (Version 8)
Quarter: 2018Q1

REPORT INFORMATION
  Report Type: Report from Study
  Country: US (occurrence: US)
  Receive Date: 20170810
  Receipt Date: 20180302
  Transmission Date: 20180508
  Serious: Yes (Hospitalization, Other)
  Sender: FDA-Public Use
  Company Number: US-ACTELION-A-US2016-134843

PATIENT
  Age: 75 Year
  Sex: Female

DRUGS (10)
  1. ZYRTEC [Concomitant]
     Active Substance: CETIRIZINE HYDROCHLORIDE
     Dosage: UNK
  2. LASIX [Concomitant]
     Active Substance: FUROSEMIDE
     Dosage: UNK
  3. LISINOPRIL. [Concomitant]
     Active Substance: LISINOPRIL
     Dosage: UNK
  4. OPSUMIT [Suspect]
     Active Substance: MACITENTAN
     Indication: PULMONARY ARTERIAL HYPERTENSION
     Dosage: 10 MG, QD
     Route: 048
     Dates: start: 20160401
  5. VITAMIN D3 [Concomitant]
     Active Substance: CHOLECALCIFEROL
     Dosage: UNK
  6. COUMADIN [Concomitant]
     Active Substance: WARFARIN SODIUM
     Dosage: UNK
  7. ZESTRIL [Concomitant]
     Active Substance: LISINOPRIL
     Dosage: UNK
  8. TOPROL XL [Concomitant]
     Active Substance: METOPROLOL SUCCINATE
     Dosage: UNK
  9. METOPROLOL. [Concomitant]
     Active Substance: METOPROLOL
     Dosage: UNK
  10. OPSUMIT [Suspect]
     Active Substance: MACITENTAN
     Dosage: 10 MG, QD
     Route: 048

REACTIONS (19)
  - Pain [Unknown]
  - Unevaluable event [Unknown]
  - Anxiety [Unknown]
  - Influenza like illness [Not Recovered/Not Resolved]
  - Cardiac failure congestive [Unknown]
  - Dizziness [Unknown]
  - Fatigue [Unknown]
  - Knee operation [Unknown]
  - Knee arthroplasty [Unknown]
  - Skin lesion [Unknown]
  - Arthropathy [Unknown]
  - Acrochordon excision [Unknown]
  - Arthritis [Unknown]
  - Headache [Unknown]
  - Neoplasm malignant [Unknown]
  - Hip arthroplasty [Unknown]
  - Fluid overload [Unknown]
  - Joint manipulation [Recovered/Resolved]
  - Biopsy skin [Unknown]

NARRATIVE: CASE EVENT DATE: 20161215
